FAERS Safety Report 11708438 (Version 1)
Quarter: 2015Q4

REPORT INFORMATION
  Report Type: Spontaneous
  Country: US (occurrence: US)
  Receive Date: 20151104
  Receipt Date: 20151104
  Transmission Date: 20160304
  Serious: No
  Sender: FDA-Public Use
  Company Number: US-ELI_LILLY_AND_COMPANY-US201102005006

PATIENT
  Sex: Female

DRUGS (6)
  1. FORTEO [Suspect]
     Active Substance: TERIPARATIDE
     Indication: OSTEOPOROSIS
     Dosage: 20 UG, DAILY (1/D)
     Dates: start: 20101218
  2. CALCIUM [Concomitant]
     Active Substance: CALCIUM
     Dosage: 2 DF, QD
  3. FORTEO [Suspect]
     Active Substance: TERIPARATIDE
     Dosage: 20 UG, QD
     Dates: start: 20110314
  4. COUMADIN [Concomitant]
     Active Substance: WARFARIN SODIUM
  5. FORTEO [Suspect]
     Active Substance: TERIPARATIDE
     Dosage: 20 UG, DAILY (1/D)
     Dates: end: 20110228
  6. CALCIUM [Concomitant]
     Active Substance: CALCIUM
     Dosage: 4 DF, QD

REACTIONS (6)
  - Back pain [Unknown]
  - Pain in extremity [Unknown]
  - Pruritus [Not Recovered/Not Resolved]
  - Blood calcium increased [Unknown]
  - Somnolence [Unknown]
  - Fatigue [Unknown]
